FAERS Safety Report 7891183 (Version 2)
Quarter: 2012Q4

REPORT INFORMATION
  Report Type: Report from Study
  Country: US (occurrence: US)
  Receive Date: 20110408
  Receipt Date: 20120924
  Transmission Date: 20130627
  Serious: Yes (Hospitalization)
  Sender: FDA-Public Use
  Company Number: US-ROCHE-758113

PATIENT
  Age: 69 Year
  Sex: Female

DRUGS (4)
  1. DOCETAXEL (TAXOTERE) [Suspect]
     Indication: BREAST CANCER
     Route: 042
  2. CARBOPLATIN [Suspect]
     Indication: BREAST CANCER
     Dosage: DOSE: AUC6
     Route: 042
  3. HERCEPTIN [Suspect]
     Indication: BREAST CANCER
     Dosage: laoding dose
     Route: 042
  4. HERCEPTIN [Suspect]
     Route: 042
     Dates: start: 20101124

REACTIONS (15)
  - Dehydration [Recovered/Resolved]
  - Syncope [Recovered/Resolved]
  - Blood creatinine increased [Recovered/Resolved]
  - Neutrophil count decreased [Recovered/Resolved]
  - Granulocyte count decreased [Recovered/Resolved]
  - Haemoglobin decreased [Recovered/Resolved]
  - Soft tissue infection [Recovered/Resolved]
  - Diarrhoea [Recovered/Resolved]
  - Anaemia [Recovered/Resolved]
  - Dizziness [None]
  - Malaise [None]
  - Fall [None]
  - Hypophagia [None]
  - Platelet count decreased [None]
  - Renal impairment [None]
